FAERS Safety Report 21307127 (Version 1)
Quarter: 2022Q3

REPORT INFORMATION
  Report Type: Spontaneous
  Country: US (occurrence: US)
  Receive Date: 20220908
  Receipt Date: 20220908
  Transmission Date: 20221026
  Serious: Yes (Hospitalization)
  Sender: FDA-Public Use
  Company Number: US-MYLANLABS-2022M1091926

PATIENT
  Age: 20 Year
  Sex: Male

DRUGS (2)
  1. LORAZEPAM [Suspect]
     Active Substance: LORAZEPAM
     Indication: Hallucination
     Dosage: RECEIVED MORE THAN 30MG
     Route: 065
  2. HALOPERIDOL [Suspect]
     Active Substance: HALOPERIDOL
     Indication: Hallucination
     Dosage: 1 DOSAGE FORM (RECEIVED ONE DOSAGE)
     Route: 065

REACTIONS (1)
  - Drug ineffective [Unknown]
